FAERS Safety Report 19265317 (Version 1)
Quarter: 2021Q2

REPORT INFORMATION
  Report Type: Spontaneous
  Country: US (occurrence: US)
  Receive Date: 20210517
  Receipt Date: 20210517
  Transmission Date: 20210717
  Serious: No
  Sender: FDA-Public Use
  Company Number: US-MICRO LABS LIMITED-ML2021-01030

PATIENT
  Sex: Female

DRUGS (2)
  1. CELIPROLOL [Concomitant]
     Active Substance: CELIPROLOL
     Indication: HYPERTENSION
  2. CELECOXIB CAPSULES, 200 MG [Suspect]
     Active Substance: CELECOXIB
     Indication: RHEUMATOID ARTHRITIS
     Dosage: 1 CAPSULE

REACTIONS (2)
  - Product substitution issue [Unknown]
  - Drug ineffective [Unknown]
